FAERS Safety Report 18156585 (Version 1)
Quarter: 2020Q3

REPORT INFORMATION
  Report Type: Spontaneous
  Country: US (occurrence: US)
  Receive Date: 20200816
  Receipt Date: 20200816
  Transmission Date: 20201103
  Serious: No
  Sender: FDA-Public Use
  Company Number: None

PATIENT
  Age: 31 Year
  Sex: Female
  Weight: 74.25 kg

DRUGS (5)
  1. LO LOESTRIN FE [Concomitant]
     Active Substance: ETHINYL ESTRADIOL\NORETHINDRONE ACETATE
  2. RIZATRIPTAN. [Concomitant]
     Active Substance: RIZATRIPTAN
  3. NARATRIPTAN [Concomitant]
     Active Substance: NARATRIPTAN HYDROCHLORIDE
  4. AIMOVIG [Suspect]
     Active Substance: ERENUMAB-AOOE
     Indication: MIGRAINE
     Dosage: ?          QUANTITY:1 INJECTION(S);OTHER FREQUENCY:MONTHLY;?
     Route: 058
     Dates: start: 20190915, end: 20200716
  5. PROPRANOLOL [Concomitant]
     Active Substance: PROPRANOLOL HYDROCHLORIDE

REACTIONS (10)
  - Arthralgia [None]
  - Headache [None]
  - Antinuclear antibody positive [None]
  - Lupus-like syndrome [None]
  - Pleuritic pain [None]
  - Fatigue [None]
  - Pyrexia [None]
  - Inflammation [None]
  - Diarrhoea [None]
  - Butterfly rash [None]

NARRATIVE: CASE EVENT DATE: 20200721
